FAERS Safety Report 5762155-6 (Version None)
Quarter: 2008Q2

REPORT INFORMATION
  Report Type: 
  Country: None (occurrence: None)
  Receive Date: 20080604
  Receipt Date: 20080528
  Transmission Date: 20081010
  Serious: Yes (Hospitalization)
  Sender: FDA-Public Use
  Company Number: 2008SP010276

PATIENT
  Age: 13 Year
  Sex: Male

DRUGS (4)
  1. TEMODAL [Suspect]
     Indication: NEOPLASM
     Dosage: 170 MG; ONCE; PO; 250 MG; QD; PO; 80 MG; ONCE; PO
     Route: 048
     Dates: start: 20071015, end: 20071015
  2. TEMODAL [Suspect]
     Indication: NEOPLASM
     Dosage: 170 MG; ONCE; PO; 250 MG; QD; PO; 80 MG; ONCE; PO
     Route: 048
     Dates: start: 20071016, end: 20071018
  3. TEMODAL [Suspect]
     Indication: NEOPLASM
     Dosage: 170 MG; ONCE; PO; 250 MG; QD; PO; 80 MG; ONCE; PO
     Route: 048
     Dates: start: 20071019, end: 20071019
  4. TOPOTECAN (TOPOTECAN) [Suspect]
     Indication: NEOPLASM
     Dosage: 1.150 MG; QD; IV
     Route: 042
     Dates: start: 20071015, end: 20071019

REACTIONS (2)
  - COUGH [None]
  - FEBRILE BONE MARROW APLASIA [None]
